FAERS Safety Report 9765505 (Version 1)
Quarter: 2013Q4

REPORT INFORMATION
  Report Type: Spontaneous
  Country: US (occurrence: US)
  Receive Date: 20131217
  Receipt Date: 20131217
  Transmission Date: 20140711
  Serious: No
  Sender: FDA-Public Use
  Company Number: US-BIOGENIDEC-2013BI111915

PATIENT
  Sex: Male

DRUGS (8)
  1. TECFIDERA [Suspect]
     Indication: MULTIPLE SCLEROSIS
     Route: 048
  2. PRILOSEC [Concomitant]
  3. BETAMETHASONE [Concomitant]
  4. KLONOPIN [Concomitant]
  5. CENTRUM [Concomitant]
  6. LEXAPRO [Concomitant]
  7. VITAMIN D2 [Concomitant]
  8. ASPIRIN [Concomitant]

REACTIONS (3)
  - Oesophagitis [Unknown]
  - Diverticulitis [Unknown]
  - Gastritis [Unknown]
